FAERS Safety Report 6914438-1 (Version None)
Quarter: 2010Q3

REPORT INFORMATION
  Report Type: 
  Country: None (occurrence: None)
  Receive Date: 20100809
  Receipt Date: 20100728
  Transmission Date: 20110219
  Serious: Yes (Hospitalization)
  Sender: FDA-Public Use
  Company Number: BR-PFIZER INC-2010082271

PATIENT
  Age: 71 Year
  Sex: Male
  Weight: 171 kg

DRUGS (10)
  1. VIAGRA [Suspect]
     Indication: ERECTILE DYSFUNCTION
     Dosage: 50 MG STRENGTH
     Route: 048
     Dates: start: 20090101
  2. NEBIVOLOL HCL [Concomitant]
     Indication: CARDIAC DISORDER
     Dosage: 1/2 TABLET
  3. AMLODIPINE [Concomitant]
     Indication: CARDIAC DISORDER
     Dosage: 5 MG, 2X/DAY
  4. CLORANA [Concomitant]
     Indication: CARDIAC DISORDER
     Dosage: 25 MG, 1X/DAY
  5. CLOPIDOGREL BISULFATE [Concomitant]
     Indication: CARDIAC DISORDER
     Dosage: 75 MG, UNK
  6. LIPITOR [Concomitant]
     Indication: BLOOD CHOLESTEROL
     Dosage: 40 MG, 1X/DAY
  7. ZETIA [Concomitant]
     Indication: BLOOD CHOLESTEROL
     Dosage: 10 MG, DISCONTINUED AFTER INFARCTION
     Dates: end: 20100101
  8. OLCADIL [Concomitant]
     Indication: NERVOUSNESS
     Dosage: 1 MG, 1X/DAY
  9. CAPTOPRIL [Concomitant]
     Dosage: 25 MG, UNK
  10. ASPIRIN [Concomitant]
     Dosage: UNK

REACTIONS (1)
  - INFARCTION [None]
